FAERS Safety Report 22303677 (Version 2)
Quarter: 2023Q2

REPORT INFORMATION
  Report Type: Spontaneous
  Country: US (occurrence: US)
  Receive Date: 20230510
  Receipt Date: 20230519
  Transmission Date: 20230721
  Serious: Yes (Other)
  Sender: FDA-Public Use
  Company Number: US-LUPIN PHARMACEUTICALS INC.-2023-03550

PATIENT

DRUGS (1)
  1. ALBUTEROL SULFATE [Suspect]
     Active Substance: ALBUTEROL SULFATE
     Indication: Asthma
     Dosage: UNK, 1 PUFF IN MORNING AND 1 PUFF IN NIGHT
     Dates: start: 202303

REACTIONS (3)
  - Device loosening [Unknown]
  - Wrong technique in product usage process [Unknown]
  - No adverse event [Unknown]
